FAERS Safety Report 5949421-6 (Version None)
Quarter: 2008Q4

REPORT INFORMATION
  Report Type: 
  Country: None (occurrence: None)
  Receive Date: 20081112
  Receipt Date: 20081031
  Transmission Date: 20090506
  Serious: Yes (Disabling, Other)
  Sender: FDA-Public Use
  Company Number: PHEH2008US08378

PATIENT
  Sex: Female

DRUGS (11)
  1. RECLAST [Suspect]
     Indication: OSTEOPOROSIS
     Dosage: UNK
     Dates: start: 20080724
  2. IRON [Concomitant]
     Dosage: UNK
     Dates: start: 20080701
  3. REMICADE [Concomitant]
     Dosage: UNK, EVERY EIGHT WEEKS
  4. VERAPAMIL [Concomitant]
     Dosage: 240 MG, QD
  5. PERCOCET [Concomitant]
     Dosage: 325 MG, PRN
  6. LIPITOR [Concomitant]
     Dosage: 10 MG, QD
  7. HYDROCHLOROTHIAZIDE [Concomitant]
     Dosage: 25 MG, QD
  8. CALTRATE +D [Concomitant]
     Dosage: ONE DAILY
  9. ASPIRIN [Concomitant]
     Dosage: 81 MG, QD
  10. K-DUR [Concomitant]
     Dosage: 20 MG, BID
  11. NEXIUM [Concomitant]
     Dosage: 40 MG, QD

REACTIONS (10)
  - ARTHRALGIA [None]
  - BACK PAIN [None]
  - HALLUCINATION [None]
  - HEADACHE [None]
  - INFLUENZA LIKE ILLNESS [None]
  - MUSCULOSKELETAL DISCOMFORT [None]
  - MYALGIA [None]
  - PAIN [None]
  - PYREXIA [None]
  - SLEEP DISORDER [None]
